FAERS Safety Report 4710521-X (Version None)
Quarter: 2005Q3

REPORT INFORMATION
  Report Type: 
  Country: None (occurrence: None)
  Receive Date: 20050707
  Receipt Date: 20050627
  Transmission Date: 20060218
  Serious: Yes (Other)
  Sender: FDA-Public Use
  Company Number: 2005095048

PATIENT
  Age: 73 Year
  Sex: Female

DRUGS (7)
  1. CARDENALIN (DOXAZOSIN) [Suspect]
     Indication: HYPERTENSION
     Dosage: 1 MG, ORAL/ 2 MG, ORAL
     Route: 048
     Dates: start: 20050602
  2. ALDACTONE [Suspect]
     Indication: HYPERTENSION
  3. DRUGS FOR TREATMENT OF BONE DISEASES (DRUGS FOR TREATMENT OF BONE DISE [Suspect]
     Indication: OSTEOPOROSIS
  4. HALCION [Concomitant]
  5. LANSOPRAZOLE [Concomitant]
  6. DIAZEPAM [Concomitant]
  7. FERROMIA (FERROUS CITRATE) [Concomitant]

REACTIONS (3)
  - ATRIOVENTRICULAR BLOCK SECOND DEGREE [None]
  - NO THERAPEUTIC RESPONSE [None]
  - TACHYCARDIA [None]
